FAERS Safety Report 5316650-4 (Version None)
Quarter: 2007Q2

REPORT INFORMATION
  Report Type: 
  Country: None (occurrence: None)
  Receive Date: 20070504
  Receipt Date: 20070426
  Transmission Date: 20071010
  Serious: Yes (Hospitalization)
  Sender: FDA-Public Use
  Company Number: FR-AVENTIS-200711423FR

PATIENT
  Age: 60 Year
  Sex: Female
  Weight: 83 kg

DRUGS (11)
  1. AMARYL [Suspect]
     Indication: DIABETES MELLITUS
     Route: 048
     Dates: start: 20031004
  2. AVANDIA [Suspect]
     Indication: DIABETES MELLITUS
     Route: 048
     Dates: start: 20050221, end: 20050630
  3. AVANDAMET [Suspect]
     Indication: DIABETES MELLITUS
     Route: 048
     Dates: start: 20050630, end: 20060915
  4. GLUCOPHAGE [Suspect]
     Indication: DIABETES MELLITUS
     Route: 048
     Dates: start: 20031004, end: 20070402
  5. DAFLON                             /00426001/ [Concomitant]
  6. FOSINOPRIL SODIUM AND HYDROCHLOROTHIAZIDE [Concomitant]
  7. DETENSIEL                          /00802601/ [Concomitant]
  8. LEVOTHYROXINE SODIUM [Concomitant]
  9. KARDEGIC                           /00002703/ [Concomitant]
  10. VASTEN                             /00880402/ [Concomitant]
  11. LAROXYL [Concomitant]

REACTIONS (2)
  - ANAEMIA MACROCYTIC [None]
  - VITAMIN B12 DEFICIENCY [None]
